FAERS Safety Report 4277391-8 (Version None)
Quarter: 2004Q1

REPORT INFORMATION
  Report Type: 
  Country: None (occurrence: None)
  Receive Date: 20040122
  Receipt Date: 20020625
  Transmission Date: 20041129
  Serious: Yes (Death)
  Sender: FDA-Public Use
  Company Number: US-GLAXOSMITHKLINE-A0372841A

PATIENT
  Age: 31 Year
  Sex: Male
  Weight: 75 kg

DRUGS (11)
  1. PAXIL [Suspect]
     Indication: PANIC ATTACK
     Route: 048
     Dates: start: 19980601
  2. DEPAKOTE [Concomitant]
     Dosage: 500MG TWICE PER DAY
     Route: 048
     Dates: start: 20001214
  3. XANAX [Concomitant]
     Dates: start: 20000101
  4. LIBRIUM [Concomitant]
     Route: 048
  5. CLONIDINE [Concomitant]
     Dates: start: 20001215
  6. MULTI-VITAMIN [Concomitant]
     Dosage: 1TAB PER DAY
     Route: 048
  7. THIAMINE [Concomitant]
     Dosage: 100MG PER DAY
     Route: 048
  8. ATIVAN [Concomitant]
  9. BUSPAR [Concomitant]
     Dosage: 15MG THREE TIMES PER DAY
     Route: 048
  10. TRAZODONE HCL [Concomitant]
     Dosage: 100MG PER DAY
  11. FOLIC ACID [Concomitant]
     Dosage: 1MG PER DAY
     Route: 048

REACTIONS (8)
  - ABNORMAL BEHAVIOUR [None]
  - AGGRESSION [None]
  - ANXIETY [None]
  - COMPLETED SUICIDE [None]
  - EJACULATION FAILURE [None]
  - HALLUCINATION [None]
  - INJURY [None]
  - PSYCHOTIC DISORDER [None]
